FAERS Safety Report 4511725-1 (Version None)
Quarter: 2004Q4

REPORT INFORMATION
  Report Type: 
  Country: None (occurrence: None)
  Receive Date: 20041129
  Receipt Date: 20041115
  Transmission Date: 20050328
  Serious: Yes (Hospitalization)
  Sender: FDA-Public Use
  Company Number: 200413498JP

PATIENT
  Age: 70 Year
  Sex: Female

DRUGS (2)
  1. KETEK [Suspect]
     Indication: BRONCHITIS
     Route: 048
     Dates: start: 20040907, end: 20040910
  2. PA [Concomitant]
     Dosage: DOSE: 6 TABLETS

REACTIONS (2)
  - MUCOSAL INFLAMMATION [None]
  - RASH [None]
